FAERS Safety Report 5944535-9 (Version None)
Quarter: 2008Q4

REPORT INFORMATION
  Report Type: 
  Country: None (occurrence: None)
  Receive Date: 20081104
  Receipt Date: 20081029
  Transmission Date: 20090506
  Serious: Yes (Other)
  Sender: FDA-Public Use
  Company Number: 20456

PATIENT
  Age: 51 Year
  Sex: Female
  Weight: 63.7 kg

DRUGS (4)
  1. EPIRUBICIN [Suspect]
     Indication: BREAST CANCER
     Dosage: 171 MG IV
     Route: 042
     Dates: start: 20081024
  2. FLUOROURACIL [Suspect]
     Indication: BREAST CANCER
     Dosage: 850 MG IV
     Route: 042
     Dates: start: 20081024
  3. ZOFRAN [Concomitant]
  4. DECADRON /00016001/. MFR: NOT SPECIFIED [Concomitant]

REACTIONS (6)
  - DYSPNOEA [None]
  - HYPERSENSITIVITY [None]
  - HYPOAESTHESIA ORAL [None]
  - MICTURITION URGENCY [None]
  - NASAL CONGESTION [None]
  - URTICARIA [None]
